FAERS Safety Report 26171369 (Version 1)
Quarter: 2025Q4

REPORT INFORMATION
  Report Type: Spontaneous
  Country: US (occurrence: None)
  Receive Date: 20251217
  Receipt Date: 20251217
  Transmission Date: 20260118
  Serious: No
  Sender: FDA-CTU
  Company Number: None

PATIENT
  Sex: Male

DRUGS (2)
  1. TAVNEOS [Suspect]
     Active Substance: AVACOPAN
     Indication: Diffuse large B-cell lymphoma refractory
     Dosage: FREQUENCY : TWICE A DAY;
     Route: 048
     Dates: start: 20250203
  2. TAVNEOS [Concomitant]
     Active Substance: AVACOPAN
     Dates: start: 20250203

REACTIONS (4)
  - Dyspnoea [None]
  - Throat tightness [None]
  - Anxiety [None]
  - Insomnia [None]
